FAERS Safety Report 4918923-3 (Version None)
Quarter: 2006Q1

REPORT INFORMATION
  Report Type: 
  Country: None (occurrence: None)
  Receive Date: 20060221
  Receipt Date: 20060221
  Transmission Date: 20060701
  Serious: Yes (Other)
  Sender: FDA-Public Use
  Company Number: None

PATIENT
  Age: 48 Year
  Sex: Female
  Weight: 65.7716 kg

DRUGS (5)
  1. FEXOFENADINE 180MG [Suspect]
     Indication: CONJUNCTIVITIS ALLERGIC
     Dosage: 180MG DAILY BY MOUTH
     Route: 048
     Dates: start: 20051101, end: 20060201
  2. KLONOPIN [Concomitant]
  3. TRAZADONE [Concomitant]
  4. LITHOBID [Concomitant]
  5. ESTROGEN [Concomitant]

REACTIONS (2)
  - FEELING JITTERY [None]
  - THERAPEUTIC RESPONSE UNEXPECTED WITH DRUG SUBSTITUTION [None]
